FAERS Safety Report 8882372 (Version 3)
Quarter: 2012Q4

REPORT INFORMATION
  Report Type: 
  Country: CN (occurrence: CN)
  Receive Date: 20121102
  Receipt Date: 20121228
  Transmission Date: 20130627
  Serious: Yes (Life-Threatening, Hospitalization, Other)
  Sender: FDA-Public Use
  Company Number: PHHY2012CN099248

PATIENT
  Age: 3 Year
  Sex: Female

DRUGS (4)
  1. TRILEPTAL [Suspect]
     Indication: EPILEPSY
     Dosage: 1.5 ml, daily
     Route: 048
  2. TRILEPTAL [Suspect]
     Dosage: 3 ml, daily
     Route: 048
  3. TOPAMAX [Concomitant]
     Indication: EPILEPSY
  4. KEPRA [Concomitant]

REACTIONS (15)
  - Retinal detachment [Unknown]
  - Haematemesis [Unknown]
  - Stevens-Johnson syndrome [Recovering/Resolving]
  - Rash [Unknown]
  - Skin reaction [Unknown]
  - Mouth ulceration [Unknown]
  - Blister [Not Recovered/Not Resolved]
  - Vomiting [Unknown]
  - Pyrexia [Recovered/Resolved]
  - Rash vesicular [Unknown]
  - Rash erythematous [Unknown]
  - Skin exfoliation [Unknown]
  - Amblyopia [Recovering/Resolving]
  - Eschar [Unknown]
  - Expressive language disorder [Not Recovered/Not Resolved]
